FAERS Safety Report 4838907-3 (Version None)
Quarter: 2005Q4

REPORT INFORMATION
  Report Type: 
  Country: None (occurrence: None)
  Receive Date: 20051024
  Receipt Date: 20050921
  Transmission Date: 20060501
  Serious: No
  Sender: FDA-Public Use
  Company Number: 217976

PATIENT
  Age: 53 Year
  Sex: Female

DRUGS (24)
  1. XOLAIR [Suspect]
     Indication: DRUG USE FOR UNKNOWN INDICATION
     Dosage: SEE IMAGE
     Route: 058
     Dates: start: 20030823, end: 20040823
  2. XOLAIR [Suspect]
     Indication: DRUG USE FOR UNKNOWN INDICATION
     Dosage: SEE IMAGE
     Route: 058
     Dates: start: 20040823, end: 20050204
  3. IMMUNE GLOBULIN INTRAVENOUS (HUMAN) [Concomitant]
  4. POTASSIUM (POTASSIUM NOS) [Concomitant]
  5. PREDNISONE [Concomitant]
  6. PROMETHAZINE/CODEINE (CODEINE PHOSPHATE, PROMETHAZINE HYDROCHLORIDE) [Concomitant]
  7. NEXIUM [Concomitant]
  8. RANITIDINE HCL (RANITIDINE) [Concomitant]
  9. TEMAZEPAM [Concomitant]
  10. THEOPHYLLINE [Concomitant]
  11. MULTI-VITAMIN SUPPLEMENT (MULTIVITAMINS NOS) [Concomitant]
  12. ALLERGY SHOT (ALLERGENIC EXTRACTS) [Concomitant]
  13. HYDROCODEINE (DIHYDROCODEINE NOS) [Concomitant]
  14. SPIRIVA [Concomitant]
  15. MUPIROCIN (MUPIROCIN) [Concomitant]
  16. LIDOCAINE HCL INJ [Concomitant]
  17. ADVAIR (SALMETEROL XINAFOATE, FLUTICASONE PROPIONATE) [Concomitant]
  18. ALBUTEROL NEBULIZER (ALBUTEROL, ALBUTEROL SULFATE) [Concomitant]
  19. IPRATROPIUM (IPRATROPIUM BROMIDE) [Concomitant]
  20. COMBIVENT (ALBUTEROL, ALBUTEROL SULFATE, IPRATROPIUM BROMIDE) [Concomitant]
  21. DOXYCYCLINE [Concomitant]
  22. FOSAMAX (ALENDRONAE SODIUM) [Concomitant]
  23. ZYRTEC [Concomitant]
  24. NASONEX [Concomitant]

REACTIONS (1)
  - SKIN DISCOLOURATION [None]
